FAERS Safety Report 7301379-3 (Version None)
Quarter: 2011Q1

REPORT INFORMATION
  Report Type: 
  Country: None (occurrence: None)
  Receive Date: 20110218
  Receipt Date: 20110214
  Transmission Date: 20110831
  Serious: Yes (Hospitalization)
  Sender: FDA-Public Use
  Company Number: US-B.I. PHARMACEUTICALS,INC./RIDGEFIELD-2011-BP-00703BP

PATIENT
  Age: 83 Year
  Sex: Female

DRUGS (8)
  1. SPIRIVA [Suspect]
     Indication: DYSPNOEA
  2. DIOVAN [Concomitant]
  3. MODURETIC 5-50 [Concomitant]
  4. LABETALOL [Concomitant]
  5. CARTIA XT [Concomitant]
  6. PREVACID [Concomitant]
  7. PREDNISONE [Concomitant]
  8. SPIRIVA [Suspect]
     Indication: CHRONIC OBSTRUCTIVE PULMONARY DISEASE
     Dosage: 18 MCG
     Route: 055

REACTIONS (5)
  - JOINT SWELLING [None]
  - HYPERTENSION [None]
  - DYSURIA [None]
  - DRY MOUTH [None]
  - DYSPNOEA [None]
